FAERS Safety Report 15076599 (Version 1)
Quarter: 2018Q2

REPORT INFORMATION
  Report Type: Spontaneous
  Country: US (occurrence: US)
  Receive Date: 20180607
  Receipt Date: 20180607
  Transmission Date: 20180711
  Serious: No
  Sender: FDA-Public Use
  Company Number: None

PATIENT
  Age: 44 Year
  Sex: Female

DRUGS (1)
  1. REBIF REBIDOSE [Suspect]
     Active Substance: INTERFERON BETA-1A
     Dosage: OTHER FREQUENCY:OTHER; YEARS?
     Route: 058

REACTIONS (2)
  - Influenza like illness [None]
  - Injection site reaction [None]

NARRATIVE: CASE EVENT DATE: 20030101
